FAERS Safety Report 6357009-0 (Version None)
Quarter: 2009Q3

REPORT INFORMATION
  Report Type: 
  Country: None (occurrence: None)
  Receive Date: 20090915
  Receipt Date: 20090907
  Transmission Date: 20100115
  Serious: Yes (Hospitalization)
  Sender: FDA-Public Use
  Company Number: GB-AMGEN-US202400

PATIENT
  Age: 27 Year
  Sex: Female

DRUGS (16)
  1. ENBREL [Suspect]
     Indication: JUVENILE ARTHRITIS
     Route: 058
     Dates: start: 20061006, end: 20061031
  2. ENBREL [Suspect]
     Route: 058
  3. FERROUS SULFATE TAB [Concomitant]
     Indication: ANAEMIA
     Dosage: 200MG FREQUENCY UNKNOWN
     Route: 048
  4. LANSOPRAZOLE [Concomitant]
     Indication: PROPHYLAXIS
     Dosage: 30MG FREQUENCY UNKNOWN
     Route: 048
  5. PREDNISOLONE [Concomitant]
     Indication: ARTHRITIS
     Route: 048
  6. ZOPICLONE [Concomitant]
     Indication: INSOMNIA
     Dosage: 7.5MG,  FREQUENCY UNKNOWN
     Route: 048
  7. ADCAL D3 [Concomitant]
  8. ALENDRONIC ACID [Concomitant]
  9. CITALOPRAM HYDROBROMIDE [Concomitant]
     Dosage: 20 MG, FREQUENCY UNKNOWN
  10. FENTANYL [Concomitant]
     Route: 062
  11. FOLIC ACID [Concomitant]
  12. IRON [Concomitant]
  13. LOFEPRAMINE [Concomitant]
  14. MORPHINE SULFATE INJ [Concomitant]
     Dosage: 10 MG, FREQUENCY UNKNOWN
  15. PARACETAMOL [Concomitant]
  16. DICLOFENAC SODIUM [Concomitant]
     Indication: ARTHRITIS
     Route: 048

REACTIONS (10)
  - ARTHRALGIA [None]
  - BLOOD URINE PRESENT [None]
  - DYSURIA [None]
  - JOINT STIFFNESS [None]
  - NORMOCHROMIC NORMOCYTIC ANAEMIA [None]
  - POLLAKIURIA [None]
  - PRODUCTIVE COUGH [None]
  - PROTEIN URINE PRESENT [None]
  - PYREXIA [None]
  - URINARY TRACT INFECTION [None]
